FAERS Safety Report 6823084-X (Version None)
Quarter: 2010Q3

REPORT INFORMATION
  Report Type: 
  Country: None (occurrence: None)
  Receive Date: 20100708
  Receipt Date: 20100701
  Transmission Date: 20110219
  Serious: Yes (Other)
  Sender: FDA-Public Use
  Company Number: JP-MERCK-0912USA03514

PATIENT
  Age: 60 Year
  Sex: Male

DRUGS (6)
  1. ZETIA [Suspect]
     Indication: HYPERCHOLESTEROLAEMIA
     Route: 048
     Dates: start: 20091005
  2. WARFARIN [Suspect]
     Indication: THROMBOSIS PROPHYLAXIS
     Route: 048
     Dates: start: 20090805, end: 20091004
  3. WARFARIN [Suspect]
     Route: 048
     Dates: start: 20091005, end: 20091206
  4. WARFARIN [Suspect]
     Route: 048
     Dates: start: 20091207, end: 20091213
  5. WARFARIN [Suspect]
     Route: 048
     Dates: start: 20091214
  6. LIVALO [Concomitant]
     Route: 065

REACTIONS (3)
  - DRUG INTERACTION [None]
  - INTERNATIONAL NORMALISED RATIO INCREASED [None]
  - PURPURA [None]
